FAERS Safety Report 14025847 (Version 1)
Quarter: 2017Q3

REPORT INFORMATION
  Report Type: Other
  Country: DE (occurrence: DE)
  Receive Date: 20170929
  Receipt Date: 20170929
  Transmission Date: 20171128
  Serious: Yes (Other)
  Sender: FDA-Public Use
  Company Number: DE-MACLEODS PHARMACEUTICALS US LTD-MAC2017006008

PATIENT

DRUGS (5)
  1. CEFUROXIM [Concomitant]
     Active Substance: CEFUROXIME
     Indication: URINARY TRACT OBSTRUCTION
     Dosage: UNK, (GESTATIONAL PERIOD AT THE TIME OF EXPOSURE : 2 TRIMESTER, 24.4. - 25.6. GESTATIONAL WEEK)
     Route: 048
     Dates: start: 20170215, end: 20170224
  2. KADEFUNGIN [Concomitant]
     Active Substance: CLOTRIMAZOLE
     Indication: VULVOVAGINAL MYCOTIC INFECTION
     Dosage: UNK, (UNKNOWN TRIMESTER)
     Route: 067
  3. FOLS?URE [Concomitant]
     Indication: PROPHYLAXIS OF NEURAL TUBE DEFECT
     Dosage: UNK, (1 TRIMESTER, 0. - 24.4. GESTATIONAL WEEK)
     Route: 048
  4. ESCITALOPRAM [Suspect]
     Active Substance: ESCITALOPRAM OXALATE
     Indication: DEPRESSION
     Dosage: 15 MG, QD, (GESTATIONAL PERIOD AT THE TIME OF EXPOSURE:1 TRIMESTER, 0. - 35.6. GESTATIONAL WEEK)
     Route: 048
     Dates: start: 20160827, end: 20170505
  5. SALBUTAMOL [Concomitant]
     Active Substance: ALBUTEROL
     Indication: HYPERSENSITIVITY
     Dosage: PRN (UNKNOWN TRIMESTER)
     Route: 055

REACTIONS (2)
  - Maternal exposure during pregnancy [Unknown]
  - Foetal death [Unknown]
